FAERS Safety Report 9592466 (Version 1)
Quarter: 2013Q4

REPORT INFORMATION
  Report Type: Spontaneous
  Country: US (occurrence: None)
  Receive Date: 20131003
  Receipt Date: 20131003
  Transmission Date: 20140711
  Serious: Yes (Hospitalization)
  Sender: FDA-Public Use
  Company Number: None

PATIENT
  Age: 51 Year
  Sex: 0
  Weight: 69.8 kg

DRUGS (1)
  1. DOCETAXEL [Suspect]
     Indication: LUNG CANCER METASTATIC
     Route: 042
     Dates: start: 20130502, end: 20130905

REACTIONS (9)
  - Hypoaesthesia [None]
  - Paraesthesia [None]
  - Pain in extremity [None]
  - Gait disturbance [None]
  - Fall [None]
  - Sensory loss [None]
  - Urinary retention [None]
  - Fatigue [None]
  - Dizziness [None]
